FAERS Safety Report 15795118 (Version 1)
Quarter: 2019Q1

REPORT INFORMATION
  Report Type: Spontaneous
  Country: US (occurrence: US)
  Receive Date: 20190107
  Receipt Date: 20190107
  Transmission Date: 20190417
  Serious: Yes (Other)
  Sender: FDA-Public Use
  Company Number: None

PATIENT
  Age: 53 Year
  Sex: Female
  Weight: 78 kg

DRUGS (14)
  1. DULOXETINE. [Concomitant]
     Active Substance: DULOXETINE
  2. MAGNESIUM [Concomitant]
     Active Substance: MAGNESIUM
  3. ELETRIPTAN. [Concomitant]
     Active Substance: ELETRIPTAN
  4. KETOROLAC [Concomitant]
     Active Substance: KETOROLAC\KETOROLAC TROMETHAMINE
  5. NORTRIPTYLINE [Concomitant]
     Active Substance: NORTRIPTYLINE
  6. TIZANIDINE. [Concomitant]
     Active Substance: TIZANIDINE
  7. EMGALITY [Suspect]
     Active Substance: GALCANEZUMAB-GNLM
     Indication: MIGRAINE
     Dosage: ?          OTHER FREQUENCY:MONTHLY;?
     Route: 058
     Dates: start: 20181030, end: 20181230
  8. PROMETHAZINE [Concomitant]
     Active Substance: PROMETHAZINE\PROMETHAZINE HYDROCHLORIDE
  9. PROPRANOLOL [Concomitant]
     Active Substance: PROPRANOLOL HYDROCHLORIDE
  10. ESTRADIAL VAGINAL RING [Concomitant]
  11. TEMAZEPAM. [Concomitant]
     Active Substance: TEMAZEPAM
  12. BOTULINUM TOXIN [Concomitant]
     Active Substance: BOTULINUM TOXIN NOS
  13. PANTOPRAZOLE [Concomitant]
     Active Substance: PANTOPRAZOLE
  14. ONDANSETRON [Concomitant]
     Active Substance: ONDANSETRON

REACTIONS (3)
  - Influenza like illness [None]
  - Injection site rash [None]
  - Injection site pain [None]

NARRATIVE: CASE EVENT DATE: 20190102
